FAERS Safety Report 8102993-8 (Version None)
Quarter: 2012Q1

REPORT INFORMATION
  Report Type: 
  Country: None (occurrence: None)
  Receive Date: 20120127
  Receipt Date: 20120116
  Transmission Date: 20120608
  Serious: Yes (Death)
  Sender: FDA-Public Use
  Company Number: 2012POI057300007

PATIENT
  Age: 20 Year
  Sex: Female

DRUGS (5)
  1. DIAZEPAM [Suspect]
     Dosage: PER ORAL
     Route: 048
     Dates: end: 20100101
  2. BENZODIAZEPINE [Suspect]
     Dosage: PER ORAL
     Route: 048
     Dates: end: 20100101
  3. MARIJUANA [Suspect]
     Dosage: PER ORAL
     Route: 048
     Dates: end: 20100101
  4. MORPHINE [Suspect]
     Dosage: PER ORAL
     Route: 048
     Dates: end: 20100101
  5. VENLAFAXINE HCL EXTENDED-RELEASE [Suspect]
     Dosage: PER ORAL
     Route: 048
     Dates: end: 20100101

REACTIONS (2)
  - RESPIRATORY ARREST [None]
  - CARDIAC ARREST [None]
